FAERS Safety Report 13973349 (Version 2)
Quarter: 2017Q4

REPORT INFORMATION
  Report Type: Spontaneous
  Country: JP (occurrence: JP)
  Receive Date: 20170915
  Receipt Date: 20171130
  Transmission Date: 20180321
  Serious: Yes (Death, Other)
  Sender: FDA-Public Use
  Company Number: JP-BAYER-2017-172752

PATIENT
  Age: 75 Year
  Sex: Male
  Weight: 58 kg

DRUGS (2)
  1. BAYASPIRIN 100 MG [Suspect]
     Active Substance: ASPIRIN
     Indication: CEREBROVASCULAR ACCIDENT PROPHYLAXIS
     Dosage: DAILY DOSE 100 MG
     Route: 048
     Dates: start: 201212
  2. CALBLOCK [Concomitant]
     Active Substance: AZELNIDIPINE
     Route: 048

REACTIONS (6)
  - Incontinence [Fatal]
  - Vomiting [Fatal]
  - Thalamus haemorrhage [Fatal]
  - Unresponsive to stimuli [Fatal]
  - Cerebral ventricular rupture [None]
  - Hemiplegia [Fatal]

NARRATIVE: CASE EVENT DATE: 20130719
